FAERS Safety Report 25734823 (Version 1)
Quarter: 2025Q3

REPORT INFORMATION
  Report Type: Spontaneous
  Country: EC (occurrence: EC)
  Receive Date: 20250828
  Receipt Date: 20250828
  Transmission Date: 20251021
  Serious: Yes (Other)
  Sender: AMERICAN REGENT
  Company Number: EC-AMERICAN REGENT INC-2025003273

PATIENT
  Age: 2 Day

DRUGS (1)
  1. FERINJECT [Suspect]
     Active Substance: FERRIC CARBOXYMALTOSE
     Indication: Product used for unknown indication
     Route: 064

REACTIONS (4)
  - Hyperbilirubinaemia neonatal [Recovered/Resolved]
  - Haematochezia [Unknown]
  - Faeces discoloured [Unknown]
  - Foetal exposure during pregnancy [Unknown]
